FAERS Safety Report 16056515 (Version 1)
Quarter: 2019Q1

REPORT INFORMATION
  Report Type: Spontaneous
  Country: US (occurrence: US)
  Receive Date: 20190311
  Receipt Date: 20190311
  Transmission Date: 20190418
  Serious: Yes (Other)
  Sender: FDA-Public Use
  Company Number: US-PFIZER INC-2019098400

PATIENT
  Age: 73 Year
  Sex: Female
  Weight: 90.26 kg

DRUGS (2)
  1. LYRICA [Suspect]
     Active Substance: PREGABALIN
     Dosage: 100 MG, 1X/DAY (TWO 50 MG CAPSULES AT NIGHT/BEDTIME)
     Route: 048
     Dates: start: 20190206, end: 201902
  2. LYRICA [Suspect]
     Active Substance: PREGABALIN
     Indication: FIBROMYALGIA
     Dosage: 50 MG, 1X/DAY
     Route: 048
     Dates: start: 20190107, end: 2019

REACTIONS (4)
  - Drug effect decreased [Unknown]
  - Hypertension [Recovering/Resolving]
  - Drug hypersensitivity [Unknown]
  - Myocardial infarction [Recovering/Resolving]

NARRATIVE: CASE EVENT DATE: 2019
